FAERS Safety Report 6334412-6 (Version None)
Quarter: 2009Q3

REPORT INFORMATION
  Report Type: 
  Country: None (occurrence: None)
  Receive Date: 20090831
  Receipt Date: 20071203
  Transmission Date: 20100115
  Serious: Yes (Hospitalization, Other)
  Sender: FDA-Public Use
  Company Number: US-ASTRAZENECA-2007UW02041

PATIENT
  Age: 44 Year
  Sex: Female
  Weight: 87.5 kg

DRUGS (8)
  1. SEROQUEL [Suspect]
     Indication: BIPOLAR DISORDER
     Dosage: 20-200 MG
     Route: 048
     Dates: start: 20000814
  2. SEROQUEL [Suspect]
     Route: 048
     Dates: start: 20000101, end: 20070301
  3. SEROQUEL [Suspect]
     Route: 048
     Dates: start: 20060301, end: 20060401
  4. DEPAKOTE [Concomitant]
     Route: 048
     Dates: start: 20020918
  5. LIPITOR [Concomitant]
     Route: 048
     Dates: start: 20031029
  6. HYDROCHLOROTHIAZIDE [Concomitant]
     Indication: HYPERTENSION
     Route: 048
     Dates: start: 20031209
  7. GLUCOPHAGE [Concomitant]
     Indication: TYPE 2 DIABETES MELLITUS
     Route: 048
     Dates: start: 20050520
  8. GLUCOTROL [Concomitant]
     Route: 048
     Dates: start: 20040511

REACTIONS (22)
  - ACUTE SINUSITIS [None]
  - BACK PAIN [None]
  - BREAST MASS [None]
  - BRONCHITIS [None]
  - CHEST PAIN [None]
  - CHRONIC SINUSITIS [None]
  - COUGH [None]
  - DERMATITIS CONTACT [None]
  - DIABETES MELLITUS [None]
  - GASTRITIS [None]
  - GLUCOSE TOLERANCE IMPAIRED [None]
  - HYPERGLYCAEMIA [None]
  - HYPERLIPIDAEMIA [None]
  - HYPERSENSITIVITY [None]
  - NAUSEA [None]
  - PNEUMONIA [None]
  - RASH [None]
  - RHINITIS ALLERGIC [None]
  - SINUSITIS [None]
  - TYPE 2 DIABETES MELLITUS [None]
  - VIRAL INFECTION [None]
  - VOMITING [None]
